FAERS Safety Report 24048867 (Version 1)
Quarter: 2024Q3

REPORT INFORMATION
  Report Type: Spontaneous
  Country: CN (occurrence: CN)
  Receive Date: 20240704
  Receipt Date: 20240704
  Transmission Date: 20241017
  Serious: Yes (Hospitalization, Other)
  Sender: NEXUS PHARMACEUTICALS
  Company Number: CN-Nexus Pharma-000288

PATIENT
  Age: 70 Year
  Sex: Male

DRUGS (2)
  1. ARSENIC TRIOXIDE [Suspect]
     Active Substance: ARSENIC TRIOXIDE
     Indication: Acute promyelocytic leukaemia
     Dosage: 0.16 MG/KG/DAY; 9 MG/DAY
  2. TRETINOIN [Suspect]
     Active Substance: TRETINOIN
     Indication: Acute promyelocytic leukaemia
     Dosage: 25 MG/M2/DAY, 40 MG/DAY

REACTIONS (2)
  - Differentiation syndrome [Unknown]
  - Oedematous pancreatitis [Unknown]
